FAERS Safety Report 17567124 (Version 2)
Quarter: 2020Q3

REPORT INFORMATION
  Report Type: Spontaneous
  Country: US (occurrence: US)
  Receive Date: 20200320
  Receipt Date: 20200814
  Transmission Date: 20201102
  Serious: Yes (Other)
  Sender: FDA-Public Use
  Company Number: US-JNJFOC-20200317873

PATIENT
  Age: 29 Year
  Sex: Female
  Weight: 74.91 kg

DRUGS (5)
  1. REMICADE [Suspect]
     Active Substance: INFLIXIMAB
     Indication: CROHN^S DISEASE
     Route: 042
  2. MELOXICAM. [Concomitant]
     Active Substance: MELOXICAM
  3. ACETAMINOPHEN. [Concomitant]
     Active Substance: ACETAMINOPHEN
     Indication: PREMEDICATION
     Route: 048
     Dates: start: 20200311
  4. REMICADE [Suspect]
     Active Substance: INFLIXIMAB
     Route: 042
     Dates: start: 20200226, end: 20200311
  5. CLARITIN [Concomitant]
     Active Substance: LORATADINE
     Indication: PREMEDICATION
     Route: 048
     Dates: start: 20200311

REACTIONS (3)
  - Infusion related reaction [Recovered/Resolved]
  - Seizure [Recovered/Resolved]
  - Abdominal discomfort [Recovered/Resolved]

NARRATIVE: CASE EVENT DATE: 20200311
